FAERS Safety Report 8695934 (Version 2)
Quarter: 2013Q4

REPORT INFORMATION
  Report Type: Spontaneous
  Country: US (occurrence: US)
  Receive Date: 20120801
  Receipt Date: 20131101
  Transmission Date: 20140711
  Serious: No
  Sender: FDA-Public Use
  Company Number: US-009507513-1207USA010691

PATIENT
  Sex: Female

DRUGS (3)
  1. ZOCOR [Suspect]
  2. LIPITOR [Suspect]
  3. ATORVASTATIN CALCIUM [Suspect]

REACTIONS (3)
  - Drug dispensing error [Unknown]
  - Flushing [Unknown]
  - Feeling hot [Unknown]
